FAERS Safety Report 8285093 (Version 2)
Quarter: 2013Q1

REPORT INFORMATION
  Report Type: Report from Study
  Country: US (occurrence: US)
  Receive Date: 20111212
  Receipt Date: 20130320
  Transmission Date: 20140127
  Serious: Yes (Other)
  Sender: FDA-Public Use
  Company Number: US-RB-021019-11

PATIENT
  Age: 27 Year
  Sex: Female

DRUGS (5)
  1. SUBOXONE FILM [Suspect]
     Indication: DRUG DEPENDENCE
     Route: 060
     Dates: start: 2010, end: 201101
  2. SUBUTEX [Suspect]
     Indication: DRUG DEPENDENCE
     Dosage: PRESCRIBED 16 MG DAILY TAKING 8 MG
     Route: 060
     Dates: start: 201101, end: 20110806
  3. SUBUTEX [Suspect]
     Dosage: TAPERING DOSE TO 1 MG
     Route: 060
     Dates: start: 201101, end: 20110806
  4. TOBACCO LEAF [Suspect]
     Indication: TOBACCO USER
     Dosage: DAILY
     Route: 065
  5. PRENATAL VITAMIN [Concomitant]
     Indication: PREGNANCY
     Dosage: DAILY
     Route: 065

REACTIONS (8)
  - Exposure during pregnancy [Recovered/Resolved]
  - Underdose [Recovered/Resolved]
  - Stress [Recovered/Resolved]
  - Vomiting in pregnancy [Recovered/Resolved]
  - Gestational hypertension [Recovered/Resolved]
  - Wrong technique in drug usage process [Recovered/Resolved]
  - Premature separation of placenta [Recovered/Resolved]
  - Haemorrhage [Recovered/Resolved]
